FAERS Safety Report 8072269-6 (Version None)
Quarter: 2012Q1

REPORT INFORMATION
  Report Type: 
  Country: None (occurrence: None)
  Receive Date: 20120126
  Receipt Date: 20120119
  Transmission Date: 20120608
  Serious: No
  Sender: FDA-Public Use
  Company Number: US-PFIZER INC-2012016310

PATIENT
  Sex: Female
  Weight: 62.585 kg

DRUGS (5)
  1. DETROL [Suspect]
     Dosage: 2 MG, 2X/DAY
     Route: 048
     Dates: start: 20120110, end: 20120113
  2. DETROL [Suspect]
     Indication: URINARY INCONTINENCE
     Dosage: 1 MG, 2X/DAY
     Route: 048
     Dates: start: 20111201
  3. MORPHINE [Concomitant]
     Dosage: UNK
  4. DIAZEPAM [Concomitant]
     Indication: SLEEP DISORDER
     Dosage: UNK
  5. CYMBALTA [Concomitant]
     Dosage: UNK

REACTIONS (2)
  - PRURITUS GENERALISED [None]
  - RASH [None]
